FAERS Safety Report 5016660-0 (Version None)
Quarter: 2006Q2

REPORT INFORMATION
  Report Type: 
  Country: None (occurrence: None)
  Receive Date: 20060526
  Receipt Date: 20060518
  Transmission Date: 20061013
  Serious: No
  Sender: FDA-Public Use
  Company Number: GXKR2006JP02794

PATIENT
  Age: 23 Year
  Sex: Female

DRUGS (1)
  1. ACETYLSALICYLIC ACID SRT [Suspect]
     Dosage: 500 MG, ONCE/SINGLE

REACTIONS (4)
  - DEPRESSED LEVEL OF CONSCIOUSNESS [None]
  - EXCESSIVE EXERCISE [None]
  - FOOD ALLERGY [None]
  - SKIN TEST POSITIVE [None]
